FAERS Safety Report 4313898-2 (Version None)
Quarter: 2004Q1

REPORT INFORMATION
  Report Type: 
  Country: None (occurrence: None)
  Receive Date: 20040305
  Receipt Date: 20040224
  Transmission Date: 20041129
  Serious: Yes (Life-Threatening, Hospitalization)
  Sender: FDA-Public Use
  Company Number: 2004008682

PATIENT
  Age: 64 Year
  Sex: Male
  Weight: 100 kg

DRUGS (9)
  1. SORTIS (ATORVASTATIN) [Suspect]
     Indication: HYPERLIPIDAEMIA
     Dosage: 20 MG ,ORAL
     Route: 048
     Dates: end: 20040205
  2. CLOPIDOGREL BISULFATE [Suspect]
     Indication: PLATELET AGGREGATION INHIBITION
     Dosage: 150 MG (DAILY) , ORAL
     Route: 048
     Dates: start: 20040202
  3. ACETYLSALICYLIC ACID SRT [Concomitant]
  4. HYZAAR [Concomitant]
  5. LOSARTAN POTASSIUM             (LOSARTAN POTASSIUM) [Concomitant]
  6. LANSOPRAZOLE [Concomitant]
  7. METFORMIN HCL [Concomitant]
  8. GLIMEPIRIDE [Concomitant]
  9. GINKGO BILOBA EXTRACT                (GINKGO BILOBA EXTRACT) [Concomitant]

REACTIONS (3)
  - DRUG INTERACTION [None]
  - POSTOPERATIVE THROMBOSIS [None]
  - STENT OCCLUSION [None]
